FAERS Safety Report 13744324 (Version 2)
Quarter: 2017Q3

REPORT INFORMATION
  Report Type: Spontaneous
  Country: DK (occurrence: DK)
  Receive Date: 20170712
  Receipt Date: 20170905
  Transmission Date: 20171127
  Serious: Yes (Congenital Anomaly)
  Sender: FDA-Public Use
  Company Number: PHHY2017DK095593

PATIENT
  Age: 32 Year
  Sex: Female

DRUGS (1)
  1. CIPROFLOXACIN. [Suspect]
     Active Substance: CIPROFLOXACIN
     Indication: MENINGITIS
     Dosage: 500 MG, ONCE/SINGLE DOSIS: 500 MG. ENGANGS DOSIS.STYRKE: 500 MG.
     Route: 048
     Dates: start: 201705, end: 201705

REACTIONS (2)
  - Abortion missed [Not Recovered/Not Resolved]
  - Exposure during pregnancy [Recovered/Resolved]

NARRATIVE: CASE EVENT DATE: 201705
